FAERS Safety Report 4511966-3 (Version None)
Quarter: 2004Q4

REPORT INFORMATION
  Report Type: 
  Country: None (occurrence: None)
  Receive Date: 20041129
  Receipt Date: 20031008
  Transmission Date: 20050328
  Serious: No
  Sender: FDA-Public Use
  Company Number: US-BRISTOL-MYERS SQUIBB COMPANY-12407839

PATIENT

DRUGS (2)
  1. SUSTIVA [Suspect]
  2. DILANTIN [Interacting]

REACTIONS (2)
  - DRUG INTERACTION [None]
  - UNEXPECTED THERAPEUTIC DRUG EFFECT [None]
